FAERS Safety Report 9504195 (Version 4)
Quarter: 2019Q4

REPORT INFORMATION
  Report Type: Spontaneous
  Country: US (occurrence: US)
  Receive Date: 20130906
  Receipt Date: 20191007
  Transmission Date: 20200122
  Serious: Yes (Death, Hospitalization, Other)
  Sender: FDA-Public Use
  Company Number: US-009507513-1309USA002799

PATIENT
  Sex: Male
  Weight: 89.8 kg

DRUGS (9)
  1. JANUVIA [Suspect]
     Active Substance: SITAGLIPTIN PHOSPHATE
     Indication: TYPE 2 DIABETES MELLITUS
     Dosage: 100 MG, QD
     Route: 048
     Dates: start: 20070611, end: 20080516
  2. BYETTA [Suspect]
     Active Substance: EXENATIDE
     Indication: TYPE 2 DIABETES MELLITUS
     Dosage: 5 MICROGRAM, BID
     Dates: start: 20101124, end: 20110728
  3. AVANDIA [Concomitant]
     Active Substance: ROSIGLITAZONE MALEATE
     Indication: TYPE 2 DIABETES MELLITUS
  4. HUMULIN NOS [Concomitant]
     Active Substance: INSULIN HUMAN
     Indication: TYPE 2 DIABETES MELLITUS
  5. HUMALOG [Concomitant]
     Active Substance: INSULIN LISPRO
     Indication: TYPE 2 DIABETES MELLITUS
  6. JANUMET [Suspect]
     Active Substance: METFORMIN HYDROCHLORIDE\SITAGLIPTIN PHOSPHATE
     Indication: TYPE 2 DIABETES MELLITUS
     Dosage: 50-500 MG, BID
     Route: 048
     Dates: start: 20080705
  7. JANUMET [Suspect]
     Active Substance: METFORMIN HYDROCHLORIDE\SITAGLIPTIN PHOSPHATE
     Dosage: 50-1000 MG, BID
     Route: 048
     Dates: start: 20110615
  8. AMARYL [Concomitant]
     Active Substance: GLIMEPIRIDE
     Indication: TYPE 2 DIABETES MELLITUS
  9. LANTUS [Concomitant]
     Active Substance: INSULIN GLARGINE
     Indication: TYPE 2 DIABETES MELLITUS

REACTIONS (44)
  - Diabetic ketoacidosis [Unknown]
  - Deafness [Unknown]
  - Stent placement [Unknown]
  - Duodenal ulcer [Unknown]
  - Stent placement [Unknown]
  - Pancreatitis acute [Unknown]
  - Abnormal loss of weight [Unknown]
  - Road traffic accident [Unknown]
  - Bile duct obstruction [Unknown]
  - Transfusion [Unknown]
  - Decreased appetite [Unknown]
  - Infection [Unknown]
  - Cholangitis acute [Unknown]
  - Jaundice cholestatic [Unknown]
  - Bile duct obstruction [Unknown]
  - Bacteraemia [Unknown]
  - Spermatocele [Unknown]
  - Adenocarcinoma pancreas [Fatal]
  - Stent placement [Unknown]
  - Hypoalbuminaemia [Unknown]
  - Malnutrition [Unknown]
  - Obstruction [Unknown]
  - Gastrointestinal haemorrhage [Unknown]
  - Dyspnoea [Unknown]
  - Hyperlipidaemia [Unknown]
  - Depression [Unknown]
  - Vision blurred [Unknown]
  - Skin discolouration [Unknown]
  - Tachycardia [Unknown]
  - Pancreatic duct obstruction [Unknown]
  - Gait disturbance [Unknown]
  - Sinus pain [Unknown]
  - Skin laceration [Unknown]
  - Sepsis [Unknown]
  - Obstruction gastric [Unknown]
  - Cataract [Unknown]
  - Skin neoplasm excision [Unknown]
  - Erectile dysfunction [Unknown]
  - Hyperkalaemia [Unknown]
  - Gastrointestinal haemorrhage [Unknown]
  - Dizziness [Unknown]
  - Fatigue [Unknown]
  - Nasal discharge discolouration [Unknown]
  - Gastrooesophageal reflux disease [Unknown]

NARRATIVE: CASE EVENT DATE: 201108
